FAERS Safety Report 12927999 (Version 1)
Quarter: 2016Q4

REPORT INFORMATION
  Report Type: Spontaneous
  Country: AU (occurrence: AU)
  Receive Date: 20161110
  Receipt Date: 20161110
  Transmission Date: 20170207
  Serious: Yes (Other)
  Sender: FDA-Public Use
  Company Number: AU-BAXTER-2016BAX056582

PATIENT
  Age: 47 Year
  Sex: Female

DRUGS (4)
  1. BAXTER 0.9% SODIUM CHLORIDE 9G_L INJECTION BP BAG AHB1324 [Suspect]
     Active Substance: SODIUM CHLORIDE
     Indication: MEDICATION DILUTION
     Dosage: COURSE 1
     Route: 042
     Dates: start: 20161025, end: 20161025
  2. PACLITAXEL. [Suspect]
     Active Substance: PACLITAXEL
     Dosage: DOSE RE-INTRODUCED
     Route: 042
  3. PACLITAXEL. [Suspect]
     Active Substance: PACLITAXEL
     Indication: BREAST CANCER
     Dosage: COURSE 1
     Route: 042
     Dates: start: 20161025, end: 20161025
  4. BAXTER 0.9% SODIUM CHLORIDE 9G_L INJECTION BP BAG AHB1324 [Suspect]
     Active Substance: SODIUM CHLORIDE
     Dosage: DOSE RE-INTRODUCED
     Route: 042

REACTIONS (6)
  - Dizziness [Unknown]
  - Abdominal pain [Recovered/Resolved]
  - Flushing [Unknown]
  - Pruritus [Recovered/Resolved]
  - Pharyngeal oedema [Recovered/Resolved]
  - Pain [Unknown]

NARRATIVE: CASE EVENT DATE: 20161025
